FAERS Safety Report 6787980-4 (Version None)
Quarter: 2010Q2

REPORT INFORMATION
  Report Type: 
  Country: None (occurrence: None)
  Receive Date: 20100623
  Receipt Date: 20071214
  Transmission Date: 20101027
  Serious: No
  Sender: FDA-Public Use
  Company Number: US-PFIZER INC-2007073824

PATIENT
  Sex: Female
  Weight: 56.818 kg

DRUGS (1)
  1. DEPO-PROVERA SUSPENSION/INJ [Suspect]
     Indication: CONTRACEPTION
     Route: 058
     Dates: start: 20070829

REACTIONS (4)
  - DRUG DISPENSING ERROR [None]
  - INCORRECT ROUTE OF DRUG ADMINISTRATION [None]
  - METRORRHAGIA [None]
  - WRONG DRUG ADMINISTERED [None]
